FAERS Safety Report 18086518 (Version 1)
Quarter: 2020Q3

REPORT INFORMATION
  Report Type: Spontaneous
  Country: US (occurrence: US)
  Receive Date: 20200728
  Receipt Date: 20200728
  Transmission Date: 20201103
  Serious: No
  Sender: FDA-Public Use
  Company Number: None

PATIENT
  Sex: Female

DRUGS (2)
  1. NIVESTYM [Suspect]
     Active Substance: FILGRASTIM-AAFI
     Indication: AGRANULOCYTOSIS
     Dosage: ?          OTHER DOSE:480MCG/0.8M;OTHER ROUTE:UNDER THE SKIN?
     Dates: start: 20200324
  2. NIVESTYM [Suspect]
     Active Substance: FILGRASTIM-AAFI
     Indication: COLON CANCER
     Dosage: ?          OTHER DOSE:480MCG/0.8M;OTHER ROUTE:UNDER THE SKIN?
     Dates: start: 20200324

REACTIONS (2)
  - Drug ineffective [None]
  - Therapy cessation [None]
